FAERS Safety Report 12844275 (Version 1)
Quarter: 2016Q4

REPORT INFORMATION
  Report Type: Spontaneous
  Country: US (occurrence: US)
  Receive Date: 20161013
  Receipt Date: 20161013
  Transmission Date: 20170207
  Serious: No
  Sender: FDA-Public Use
  Company Number: US-009507513-1609USA007835

PATIENT
  Age: 61 Year
  Sex: Female

DRUGS (17)
  1. SIROLIMUS. [Suspect]
     Active Substance: SIROLIMUS
     Indication: LYMPHANGIOLEIOMYOMATOSIS
     Dosage: INITIALLY: 0.5 MG, PER DAY
     Dates: start: 20150105, end: 2015
  2. CRESTOR [Concomitant]
     Active Substance: ROSUVASTATIN CALCIUM
     Dosage: 5 MG, UNK
     Dates: start: 201503, end: 20160526
  3. ZOCOR [Suspect]
     Active Substance: SIMVASTATIN
     Indication: BLOOD CHOLESTEROL INCREASED
     Dosage: 10 MG, UNK
     Route: 048
     Dates: start: 201502, end: 201503
  4. PRINIVIL [Concomitant]
     Active Substance: LISINOPRIL
     Dosage: 20 MG, UNK
     Route: 048
  5. PRINIVIL [Concomitant]
     Active Substance: LISINOPRIL
     Dosage: 15 MG, UNK
     Route: 048
  6. ESTER-C [Concomitant]
     Active Substance: CALCIUM\VITAMINS
     Dosage: UNK
  7. SIROLIMUS. [Suspect]
     Active Substance: SIROLIMUS
     Dosage: INCREASED TO 1 MG PER DAY
     Dates: start: 20160705
  8. ASPIRIN. [Concomitant]
     Active Substance: ASPIRIN
     Dosage: DOSE REPORTED AS: LOW DOSE, UNK
     Route: 048
  9. OMEPRAZOLE. [Concomitant]
     Active Substance: OMEPRAZOLE
     Dosage: 20 MG, UNK
  10. SIROLIMUS. [Suspect]
     Active Substance: SIROLIMUS
     Dosage: INCREASED TO 1 MG PER DAY
     Dates: start: 2015, end: 201503
  11. ERGOCALCIFEROL. [Concomitant]
     Active Substance: ERGOCALCIFEROL
     Dosage: UNK
  12. ZOCOR [Suspect]
     Active Substance: SIMVASTATIN
     Dosage: 20 MG, UNK
     Route: 048
     Dates: start: 20160526, end: 20160701
  13. VITAMIN E [Concomitant]
     Active Substance: .ALPHA.-TOCOPHEROL
     Dosage: UNK
  14. PRINIVIL [Concomitant]
     Active Substance: LISINOPRIL
     Dosage: 10 MG, UNK
     Route: 048
  15. VITAMINS (UNSPECIFIED) [Concomitant]
     Active Substance: VITAMINS
     Dosage: UNK
  16. SIROLIMUS. [Suspect]
     Active Substance: SIROLIMUS
     Dosage: DECREASED TO 0.5 MG PER DAY
     Dates: start: 201503, end: 20160705
  17. TIMOLOL MALEATE. [Concomitant]
     Active Substance: TIMOLOL MALEATE
     Dosage: UNK
     Route: 047

REACTIONS (2)
  - Drug ineffective [Unknown]
  - Malaise [Not Recovered/Not Resolved]

NARRATIVE: CASE EVENT DATE: 201606
